FAERS Safety Report 4564018-0 (Version None)
Quarter: 2005Q1

REPORT INFORMATION
  Report Type: 
  Country: None (occurrence: None)
  Receive Date: 20050119
  Receipt Date: 20050103
  Transmission Date: 20050727
  Serious: No
  Sender: FDA-Public Use
  Company Number: THYM-10046

PATIENT
  Age: 32 Year
  Sex: Male
  Weight: 70.7611 kg

DRUGS (3)
  1. THYMOGLOBULIN [Suspect]
     Indication: RENAL TRANSPLANT
     Dosage: 104 MG ONCE
     Dates: start: 20031111, end: 20031111
  2. THYMOGLOBULIN [Suspect]
     Indication: RENAL TRANSPLANT
     Dosage: 54 MG ONCE
     Dates: start: 20031112, end: 20031112
  3. THYMOGLOBULIN [Suspect]
     Indication: RENAL TRANSPLANT
     Dosage: 54 MG ONCE
     Dates: start: 20031115, end: 20031115

REACTIONS (5)
  - DISEASE RECURRENCE [None]
  - GLOMERULONEPHRITIS FOCAL [None]
  - LEUKOPENIA [None]
  - PARVOVIRUS B19 SEROLOGY POSITIVE [None]
  - PLATELET COUNT DECREASED [None]
